FAERS Safety Report 13456481 (Version 4)
Quarter: 2017Q2

REPORT INFORMATION
  Report Type: Report from Study
  Country: US (occurrence: US)
  Receive Date: 20170418
  Receipt Date: 20170608
  Transmission Date: 20170830
  Serious: Yes (Other)
  Sender: FDA-Public Use
  Company Number: US-JAZZ-2017-US-003306

PATIENT
  Age: 50 Year
  Sex: Male

DRUGS (19)
  1. XYREM [Suspect]
     Active Substance: SODIUM OXYBATE
     Dosage: DOSE ADJUSTMENTS
     Route: 048
     Dates: start: 2010, end: 2016
  2. XYREM [Suspect]
     Active Substance: SODIUM OXYBATE
     Indication: NARCOLEPSY
     Dosage: 2.25 G, BID
     Route: 048
     Dates: start: 201002, end: 2010
  3. COENZYME Q10 [Concomitant]
     Active Substance: UBIDECARENONE
  4. NIACIN. [Concomitant]
     Active Substance: NIACIN
  5. ZOLPIDEM TARTRATE. [Concomitant]
     Active Substance: ZOLPIDEM TARTRATE
  6. XYREM [Suspect]
     Active Substance: SODIUM OXYBATE
     Dosage: 3.75 G, BID
     Route: 048
     Dates: start: 201604, end: 2017
  7. DIAZEPAM. [Concomitant]
     Active Substance: DIAZEPAM
  8. CIPRO [Concomitant]
     Active Substance: CIPROFLOXACIN HYDROCHLORIDE
  9. VALPROIC ACID. [Concomitant]
     Active Substance: VALPROIC ACID
  10. ZALEPLON. [Concomitant]
     Active Substance: ZALEPLON
  11. METRONIDAZOLE. [Concomitant]
     Active Substance: METRONIDAZOLE
  12. OMEGA-3 FISH OIL [Concomitant]
     Active Substance: FISH OIL\OMEGA-3 FATTY ACIDS
  13. VITAMIN B 2 [Concomitant]
  14. VITAMIN E                          /00110501/ [Concomitant]
     Active Substance: TOCOPHEROL
  15. ZANTAC [Concomitant]
     Active Substance: RANITIDINE HYDROCHLORIDE
  16. TRANSDERM SCOP [Concomitant]
     Active Substance: SCOPOLAMINE
  17. VITAMIN D3 [Concomitant]
     Active Substance: CHOLECALCIFEROL
  18. ESZOPICLONE. [Concomitant]
     Active Substance: ESZOPICLONE
  19. PAXIL [Concomitant]
     Active Substance: PAROXETINE HYDROCHLORIDE

REACTIONS (10)
  - Gastrointestinal necrosis [Not Recovered/Not Resolved]
  - Tooth disorder [Unknown]
  - Diaphragmatic disorder [Not Recovered/Not Resolved]
  - Anxiety [Unknown]
  - Memory impairment [Not Recovered/Not Resolved]
  - Abdominal discomfort [Unknown]
  - Malaise [Unknown]
  - Nausea [Unknown]
  - Colitis [Recovering/Resolving]
  - Concussion [Not Recovered/Not Resolved]

NARRATIVE: CASE EVENT DATE: 201301
